FAERS Safety Report 16485690 (Version 1)
Quarter: 2019Q2

REPORT INFORMATION
  Report Type: Spontaneous
  Country: FR (occurrence: FR)
  Receive Date: 20190627
  Receipt Date: 20190627
  Transmission Date: 20190711
  Serious: Yes (Hospitalization)
  Sender: FDA-Public Use
  Company Number: FR-MYLANLABS-2019M1059545

PATIENT
  Age: 54 Year
  Sex: Female
  Weight: 89.1 kg

DRUGS (5)
  1. PREGABALIN. [Suspect]
     Active Substance: PREGABALIN
     Indication: NEURALGIA
     Dosage: 50 MILLIGRAM, QD
     Route: 048
     Dates: start: 20181212, end: 20181217
  2. DOXORUBICINE                       /00330901/ [Suspect]
     Active Substance: DOXORUBICIN
     Indication: EWING^S SARCOMA METASTATIC
     Dosage: 20 MILLIGRAM/SQ. METER, QD
     Route: 041
     Dates: start: 20181214, end: 20181216
  3. HOLOXAN [Suspect]
     Active Substance: IFOSFAMIDE
     Indication: EWING^S SARCOMA METASTATIC
     Dosage: 2500 MILLIGRAM/SQ. METER, QD
     Route: 041
     Dates: start: 20181214, end: 20181216
  4. CHLORPROMAZINE. [Suspect]
     Active Substance: CHLORPROMAZINE
     Indication: PRODUCT USED FOR UNKNOWN INDICATION
     Dosage: 25 MILLIGRAM, QD
     Route: 042
     Dates: start: 20181212, end: 20181217
  5. MIDAZOLAM [Suspect]
     Active Substance: MIDAZOLAM HYDROCHLORIDE
     Indication: SEDATION
     Dosage: INCONNUE
     Route: 041
     Dates: start: 20181203, end: 20181217

REACTIONS (1)
  - Encephalopathy [Recovered/Resolved]

NARRATIVE: CASE EVENT DATE: 20181216
